FAERS Safety Report 9926022 (Version 2)
Quarter: 2014Q1

REPORT INFORMATION
  Report Type: Spontaneous
  Country: US (occurrence: US)
  Receive Date: 20140226
  Receipt Date: 20140328
  Transmission Date: 20141002
  Serious: Yes (Other)
  Sender: FDA-Public Use
  Company Number: US-TEVA-464870USA

PATIENT
  Sex: Female
  Weight: 52.21 kg

DRUGS (3)
  1. NUVIGIL [Suspect]
     Indication: SLEEP APNOEA SYNDROME
     Dosage: 150 MILLIGRAM DAILY;
     Dates: start: 201211
  2. DETROL [Concomitant]
     Indication: MICTURITION URGENCY
  3. RESTASIS [Concomitant]
     Indication: DRY EYE

REACTIONS (3)
  - Sudden onset of sleep [Not Recovered/Not Resolved]
  - Drug ineffective [Not Recovered/Not Resolved]
  - Somnolence [Not Recovered/Not Resolved]
